FAERS Safety Report 5048603-8 (Version None)
Quarter: 2006Q2

REPORT INFORMATION
  Report Type: 
  Country: None (occurrence: None)
  Receive Date: 20060629
  Receipt Date: 20060617
  Transmission Date: 20061013
  Serious: Yes (Death)
  Sender: FDA-Public Use
  Company Number: 2006BH011108

PATIENT
  Age: 8 Year
  Sex: Female

DRUGS (5)
  1. ALBUMIN (HUMAN) [Suspect]
     Indication: SPINAL CORD NEOPLASM
     Dosage: 10 GM;ONCE;IV
     Route: 042
     Dates: start: 20060617, end: 20060617
  2. MINIRIN [Concomitant]
  3. CEFEPIME [Concomitant]
  4. NORVANCOMYCIN [Concomitant]
  5. MANNITOL [Concomitant]

REACTIONS (3)
  - CONVULSION [None]
  - PROCEDURAL COMPLICATION [None]
  - RESPIRATORY ARREST [None]
